FAERS Safety Report 25560312 (Version 1)
Quarter: 2025Q3

REPORT INFORMATION
  Report Type: Spontaneous
  Country: EU (occurrence: EU)
  Receive Date: 20250715
  Receipt Date: 20250715
  Transmission Date: 20251021
  Serious: Yes (Life-Threatening)
  Sender: PRASCO
  Company Number: None

PATIENT
  Age: 44 Year
  Sex: Female
  Weight: 78 kg

DRUGS (1)
  1. NITROLINGUAL PUMPSPRAY [Suspect]
     Active Substance: NITROGLYCERIN
     Indication: Angina pectoris
     Dosage: 1X
     Route: 060
     Dates: start: 20240215, end: 20240216

REACTIONS (2)
  - Product substitution issue [Unknown]
  - Loss of consciousness [Recovered/Resolved]
